FAERS Safety Report 20359490 (Version 2)
Quarter: 2022Q1

REPORT INFORMATION
  Report Type: Spontaneous
  Country: KR (occurrence: KR)
  Receive Date: 20220121
  Receipt Date: 20220201
  Transmission Date: 20220423
  Serious: Yes (Other)
  Sender: FDA-Public Use
  Company Number: KR-ASTELLAS-2022US001099

PATIENT
  Age: 79 Year
  Sex: Male

DRUGS (1)
  1. HARNAL [Suspect]
     Active Substance: TAMSULOSIN HYDROCHLORIDE
     Indication: Dysuria
     Dosage: 0.2 MG, ONCE DAILY (30 MINUTES AFTER DINNER)
     Route: 048
     Dates: start: 2012

REACTIONS (3)
  - Urinary retention [Not Recovered/Not Resolved]
  - Urine abnormality [Not Recovered/Not Resolved]
  - Drug ineffective [Not Recovered/Not Resolved]
